FAERS Safety Report 6534452-8 (Version None)
Quarter: 2009Q4

REPORT INFORMATION
  Report Type: 
  Country: None (occurrence: None)
  Receive Date: 20091228
  Receipt Date: 20090406
  Transmission Date: 20100525
  Serious: Yes (Hospitalization, Other)
  Sender: FDA-Public Use
  Company Number: 20090114

PATIENT
  Age: 76 Year
  Sex: Male

DRUGS (1)
  1. VENOFER [Suspect]
     Indication: IRON DEFICIENCY ANAEMIA
     Dosage: 500 MG INTRAVENOUS
     Route: 042
     Dates: start: 20090115, end: 20090115

REACTIONS (3)
  - ANAPHYLACTIC REACTION [None]
  - JOINT SWELLING [None]
  - OEDEMA [None]
